FAERS Safety Report 11889932 (Version 1)
Quarter: 2016Q1

REPORT INFORMATION
  Report Type: Spontaneous
  Country: US (occurrence: US)
  Receive Date: 20160105
  Receipt Date: 20160105
  Transmission Date: 20160526
  Serious: No
  Sender: FDA-Public Use
  Company Number: US-PERRIGO-15US004791

PATIENT
  Age: 82 Year
  Sex: Female
  Weight: 58.5 kg

DRUGS (2)
  1. GUAIFENESIN 600 MG 498 [Suspect]
     Active Substance: GUAIFENESIN
     Indication: UPPER RESPIRATORY TRACT CONGESTION
     Dosage: 600 MG, SINGLE
     Route: 048
     Dates: start: 20150504, end: 20150504
  2. HYDROCHLOROTHIAZIDE. [Concomitant]
     Active Substance: HYDROCHLOROTHIAZIDE
     Indication: HYPERTENSION
     Dosage: UNK
     Route: 065

REACTIONS (3)
  - Dizziness [Recovered/Resolved]
  - Abdominal discomfort [Recovered/Resolved]
  - Hyperhidrosis [Recovered/Resolved]

NARRATIVE: CASE EVENT DATE: 20150504
